FAERS Safety Report 23144955 (Version 4)
Quarter: 2023Q4

REPORT INFORMATION
  Report Type: Report from Study
  Country: US (occurrence: US)
  Receive Date: 20231103
  Receipt Date: 20231220
  Transmission Date: 20240109
  Serious: Yes (Death, Hospitalization, Other)
  Sender: FDA-Public Use
  Company Number: US-BAUSCH-BL-2023-016453

PATIENT
  Age: 60 Year
  Sex: Male

DRUGS (1)
  1. XIFAXAN [Suspect]
     Active Substance: RIFAXIMIN
     Indication: Hepatic encephalopathy
     Route: 048

REACTIONS (6)
  - Death [Fatal]
  - Hyperkalaemia [Unknown]
  - Blood potassium decreased [Unknown]
  - Postoperative wound infection [Unknown]
  - Liver disorder [Unknown]
  - Liver transplant [Unknown]

NARRATIVE: CASE EVENT DATE: 20230101
